FAERS Safety Report 13076034 (Version 1)
Quarter: 2016Q4

REPORT INFORMATION
  Report Type: Spontaneous
  Country: US (occurrence: US)
  Receive Date: 20161229
  Receipt Date: 20161229
  Transmission Date: 20170207
  Serious: Yes (Death)
  Sender: FDA-Public Use
  Company Number: None

PATIENT
  Age: 65 Year
  Sex: Female

DRUGS (1)
  1. JAKAFI [Suspect]
     Active Substance: RUXOLITINIB
     Indication: PRODUCT USED FOR UNKNOWN INDICATION
     Dosage: 2 TABLETS (10MG) TWO TIMES DAILY DAILY
     Dates: start: 20161108, end: 20161224

REACTIONS (2)
  - Fall [None]
  - Haemorrhage [None]

NARRATIVE: CASE EVENT DATE: 20161224
